FAERS Safety Report 11695572 (Version 2)
Quarter: 2015Q4

REPORT INFORMATION
  Report Type: Report from Study
  Country: GB (occurrence: GB)
  Receive Date: 20151104
  Receipt Date: 20151216
  Transmission Date: 20160304
  Serious: Yes (Hospitalization)
  Sender: FDA-Public Use
  Company Number: GB-ACCORD-034903

PATIENT
  Age: 65 Year
  Sex: Male
  Weight: 111 kg

DRUGS (3)
  1. RAMIPRIL. [Suspect]
     Active Substance: RAMIPRIL
     Indication: PRODUCT USED FOR UNKNOWN INDICATION
     Route: 065
     Dates: start: 201411, end: 20150921
  2. ACETYLSALICYLIC ACID [Suspect]
     Active Substance: ASPIRIN
     Indication: PRODUCT USED FOR UNKNOWN INDICATION
     Route: 065
  3. SERELAXIN [Suspect]
     Active Substance: SERELAXIN
     Indication: CORONARY ARTERY DISEASE
     Dosage: CODE NOT BROKEN. 48 HOUR INFUSION
     Route: 042
     Dates: start: 20150901, end: 20150903

REACTIONS (2)
  - Angioedema [Recovered/Resolved]
  - Gastrooesophageal reflux disease [Recovered/Resolved]

NARRATIVE: CASE EVENT DATE: 20150920
